FAERS Safety Report 14612126 (Version 1)
Quarter: 2018Q1

REPORT INFORMATION
  Report Type: Spontaneous
  Country: FR (occurrence: FR)
  Receive Date: 20180308
  Receipt Date: 20180308
  Transmission Date: 20180509
  Serious: Yes (Hospitalization)
  Sender: FDA-Public Use
  Company Number: FR-BAYER-2018-038065

PATIENT
  Age: 80 Year
  Sex: Female

DRUGS (1)
  1. STIVARGA [Suspect]
     Active Substance: REGORAFENIB
     Indication: NEOPLASM MALIGNANT
     Dosage: DAILY DOSE 40 MG
     Route: 048
     Dates: start: 20171206

REACTIONS (4)
  - Mucosal inflammation [Not Recovered/Not Resolved]
  - Toxic skin eruption [Not Recovered/Not Resolved]
  - Rash [Not Recovered/Not Resolved]
  - Skin disorder [Not Recovered/Not Resolved]

NARRATIVE: CASE EVENT DATE: 20171210
